FAERS Safety Report 25507468 (Version 2)
Quarter: 2025Q3

REPORT INFORMATION
  Report Type: Spontaneous
  Country: EU (occurrence: EU)
  Receive Date: 20250703
  Receipt Date: 20250806
  Transmission Date: 20251021
  Serious: Yes (Death, Life-Threatening, Hospitalization, Other)
  Sender: BOEHRINGER INGELHEIM
  Company Number: None

PATIENT
  Age: 73 Year
  Sex: Male
  Weight: 75 kg

DRUGS (8)
  1. JARDIANCE [Suspect]
     Active Substance: EMPAGLIFLOZIN
     Indication: Cardiac failure
     Dosage: UNTIL 17-JUN-2025 (PREVIOUS MEDICATION)
  2. ASPIRIN [Concomitant]
     Active Substance: ASPIRIN
     Indication: Angioplasty
  3. ENTRESTO [Concomitant]
     Active Substance: SACUBITRIL\VALSARTAN
     Indication: Cardiac failure
  4. MELPERONE [Concomitant]
     Active Substance: MELPERONE
     Indication: Delirium
  5. RISPERIDONE [Concomitant]
     Active Substance: RISPERIDONE
     Indication: Delirium
  6. SPIRONOLACTONE [Concomitant]
     Active Substance: SPIRONOLACTONE
     Indication: Cardiac failure
  7. TICAGRELOR [Concomitant]
     Active Substance: TICAGRELOR
     Indication: Angioplasty
  8. TORSEMIDE [Concomitant]
     Active Substance: TORSEMIDE
     Indication: Cardiac failure

REACTIONS (4)
  - Euglycaemic diabetic ketoacidosis [Fatal]
  - Shock [Fatal]
  - Lactic acidosis [Fatal]
  - Metabolic acidosis [Unknown]

NARRATIVE: CASE EVENT DATE: 20250601
